FAERS Safety Report 17802638 (Version 1)
Quarter: 2020Q2

REPORT INFORMATION
  Report Type: Spontaneous
  Country: US (occurrence: US)
  Receive Date: 20200519
  Receipt Date: 20200519
  Transmission Date: 20200714
  Serious: Yes (Death)
  Sender: FDA-Public Use
  Company Number: None

PATIENT
  Age: 60 Year
  Sex: Female
  Weight: 90 kg

DRUGS (22)
  1. CARVEDILOL. [Concomitant]
     Active Substance: CARVEDILOL
     Dates: start: 20200512, end: 20200518
  2. FUROSEMIDE. [Concomitant]
     Active Substance: FUROSEMIDE
     Dates: start: 20200515, end: 20200518
  3. LACTOBACILLUS ACIDOPHILUS [Concomitant]
     Active Substance: LACTOBACILLUS ACIDOPHILUS
     Dates: start: 20200427, end: 20200518
  4. MULTIVITAMIN [Concomitant]
     Active Substance: VITAMINS
     Dates: start: 20200413, end: 20200518
  5. SENNA [Concomitant]
     Active Substance: SENNA LEAF\SENNOSIDES\SENNOSIDES A AND B
     Dates: start: 20200411, end: 20200518
  6. VANCOMYCIN [Concomitant]
     Active Substance: VANCOMYCIN
     Dates: start: 20200517, end: 20200518
  7. AMLODIPINE [Concomitant]
     Active Substance: AMLODIPINE BESYLATE
     Dates: start: 20200506, end: 20200518
  8. ENOXAPARIN [Concomitant]
     Active Substance: ENOXAPARIN
     Dates: start: 20200411, end: 20200518
  9. MEROPENEM. [Concomitant]
     Active Substance: MEROPENEM
     Dates: start: 20200517, end: 20200518
  10. NEUTRA-PHOS [Concomitant]
     Active Substance: POTASSIUM PHOSPHATE, DIBASIC\POTASSIUM PHOSPHATE, MONOBASIC\SODIUM PHOSPHATE, DIBASIC\SODIUM PHOSPHATE, MONOBASIC
     Dates: start: 20200424, end: 20200518
  11. LANSOPRAZOLE. [Concomitant]
     Active Substance: LANSOPRAZOLE
     Dates: start: 20200409, end: 20200518
  12. POLYETHYLENE GLYCOL 3350. [Concomitant]
     Active Substance: POLYETHYLENE GLYCOL 3350
     Dates: start: 20200511, end: 20200518
  13. POTASSIUM CHLORIDE. [Concomitant]
     Active Substance: POTASSIUM CHLORIDE
     Dates: start: 20200517, end: 20200518
  14. AMIODARONE [Concomitant]
     Active Substance: AMIODARONE
     Dates: start: 20200501, end: 20200518
  15. DOCUSATE [Concomitant]
     Active Substance: DOCUSATE
     Dates: start: 20200423, end: 20200518
  16. OXYCODONE [Concomitant]
     Active Substance: OXYCODONE
     Dates: start: 20200514, end: 20200518
  17. HYDROMORPHONE [Concomitant]
     Active Substance: HYDROMORPHONE
     Dates: start: 20200509, end: 20200518
  18. INSULIN GLARGINE [Concomitant]
     Active Substance: INSULIN GLARGINE
     Dates: start: 20200515, end: 20200518
  19. LORAZEPAM. [Concomitant]
     Active Substance: LORAZEPAM
     Dates: start: 20200515, end: 20200518
  20. REMDESIVIR. [Suspect]
     Active Substance: REMDESIVIR
     Indication: COVID-19
     Route: 040
     Dates: start: 20200516, end: 20200518
  21. INSULIN LISPRO [Concomitant]
     Active Substance: INSULIN LISPRO
     Dates: start: 20200515, end: 20200518
  22. METOCLOPRAMIDE. [Concomitant]
     Active Substance: METOCLOPRAMIDE
     Dates: start: 20200501, end: 20200518

REACTIONS (6)
  - Cardiac arrest [None]
  - Pneumonia pseudomonal [None]
  - COVID-19 [None]
  - Disease complication [None]
  - Respiratory failure [None]
  - Bacteraemia [None]

NARRATIVE: CASE EVENT DATE: 20200518
